FAERS Safety Report 9766969 (Version 1)
Quarter: 2013Q4

REPORT INFORMATION
  Report Type: Spontaneous
  Country: US (occurrence: None)
  Receive Date: 20131216
  Receipt Date: 20131216
  Transmission Date: 20140711
  Serious: Yes (Death)
  Sender: FDA-Public Use
  Company Number: None

PATIENT
  Age: 70 Year
  Sex: Female
  Weight: 48.08 kg

DRUGS (19)
  1. IBRUTINIB [Suspect]
     Indication: CHRONIC LYMPHOCYTIC LEUKAEMIA
     Route: 048
     Dates: start: 20130306, end: 20131127
  2. AMLODIPINE [Concomitant]
  3. MIRTAZAPINE [Concomitant]
  4. ALLOPURINOL [Concomitant]
  5. PROMETHAZINE [Concomitant]
  6. LOPERAMIDE [Concomitant]
  7. PROCHLORPERAZINE [Concomitant]
  8. POTASSIUM CHLORIDE [Concomitant]
  9. METFORMIN [Concomitant]
  10. LEVOTHYROXINE [Concomitant]
  11. METOPROLOL [Concomitant]
  12. VITAMIN D3 [Concomitant]
  13. LOSARTAN [Concomitant]
  14. MAGNESIUM OXIDE [Concomitant]
  15. ACYCLOVIR [Concomitant]
  16. AMLODIPINE [Concomitant]
  17. MIRTAZAPINE [Concomitant]
  18. ALLOPURINOL [Concomitant]
  19. PROMETHAZINE HCL [Concomitant]

REACTIONS (25)
  - Hypophagia [None]
  - Pneumonia viral [None]
  - Pollakiuria [None]
  - Hypotension [None]
  - Leukocytosis [None]
  - Thrombocytopenia [None]
  - Anaemia [None]
  - Atelectasis [None]
  - Blood alkaline phosphatase abnormal [None]
  - Hyponatraemia [None]
  - Blood creatinine increased [None]
  - Pleural effusion [None]
  - Superinfection [None]
  - Organising pneumonia [None]
  - Bacteraemia [None]
  - Morganella test positive [None]
  - Human rhinovirus test positive [None]
  - Urinary retention [None]
  - Disease recurrence [None]
  - Mental status changes [None]
  - Hyperbilirubinaemia [None]
  - Cholelithiasis [None]
  - Lymphadenopathy [None]
  - Nasal polyps [None]
  - Lethargy [None]
